FAERS Safety Report 4475536-8 (Version None)
Quarter: 2004Q4

REPORT INFORMATION
  Report Type: 
  Country: None (occurrence: None)
  Receive Date: 20041015
  Receipt Date: 20041005
  Transmission Date: 20050328
  Serious: Yes (Other)
  Sender: FDA-Public Use
  Company Number: US-MERCK-0410USA00744

PATIENT
  Age: 59 Year
  Sex: Male

DRUGS (9)
  1. LIPITOR [Concomitant]
     Route: 065
  2. LANOXIN [Concomitant]
     Route: 065
  3. ZETIA [Concomitant]
     Route: 065
  4. FUROSEMIDE [Concomitant]
     Route: 065
  5. GEMFIBROZIL [Concomitant]
     Route: 065
  6. LISINOPRIL [Concomitant]
     Route: 065
  7. METOPROLOL [Concomitant]
     Route: 065
  8. VIOXX [Suspect]
     Indication: ARTHRITIS
     Route: 048
     Dates: start: 20000101, end: 20040901
  9. COUMADIN [Concomitant]
     Route: 065

REACTIONS (1)
  - MYOCARDIAL INFARCTION [None]
